FAERS Safety Report 15368763 (Version 2)
Quarter: 2018Q3

REPORT INFORMATION
  Report Type: Report from Study
  Country: US (occurrence: US)
  Receive Date: 20180911
  Receipt Date: 20180914
  Transmission Date: 20181010
  Serious: No
  Sender: FDA-Public Use
  Company Number: US-AMGEN-USASL2018122899

PATIENT
  Age: 56 Year
  Sex: Female

DRUGS (2)
  1. ENBREL [Suspect]
     Active Substance: ETANERCEPT
     Indication: RHEUMATOID ARTHRITIS
     Dosage: 50 MG, QWK
     Route: 065
     Dates: start: 201807
  2. ENBREL [Suspect]
     Active Substance: ETANERCEPT
     Dosage: 50 MG, QWK
     Route: 065

REACTIONS (7)
  - Injection site pain [Unknown]
  - Erythema [Unknown]
  - Rash pruritic [Unknown]
  - Musculoskeletal stiffness [Not Recovered/Not Resolved]
  - Injection site erythema [Unknown]
  - Pain [Not Recovered/Not Resolved]
  - Injection site vesicles [Unknown]

NARRATIVE: CASE EVENT DATE: 2018
